FAERS Safety Report 24454407 (Version 2)
Quarter: 2024Q4

REPORT INFORMATION
  Report Type: Report from Study
  Country: US (occurrence: US)
  Receive Date: 20241017
  Receipt Date: 20241018
  Transmission Date: 20250115
  Serious: No
  Sender: ROCHE
  Company Number: US-ROCHE-3455598

PATIENT
  Age: 72 Year
  Sex: Male

DRUGS (15)
  1. RITUXAN [Suspect]
     Active Substance: RITUXIMAB
     Indication: Myelitis transverse
     Route: 065
  2. OCREVUS [Suspect]
     Active Substance: OCRELIZUMAB
     Indication: Myelitis transverse
     Route: 065
  3. ACTEMRA [Suspect]
     Active Substance: TOCILIZUMAB
     Indication: Myelitis transverse
     Route: 042
  4. ACTEMRA [Suspect]
     Active Substance: TOCILIZUMAB
     Indication: Demyelination
  5. ADVIL [Concomitant]
     Active Substance: IBUPROFEN
  6. BACLOFEN [Concomitant]
     Active Substance: BACLOFEN
  7. CLARITIN [Concomitant]
     Active Substance: LORATADINE
  8. FINASTERIDE [Concomitant]
     Active Substance: FINASTERIDE
  9. GRALISE [Concomitant]
     Active Substance: GABAPENTIN
  10. MAGNESIUM OXIDE [Concomitant]
     Active Substance: MAGNESIUM OXIDE
  11. MINERALS\VITAMINS [Concomitant]
     Active Substance: MINERALS\VITAMINS
  12. TAMSULOSIN [Concomitant]
     Active Substance: TAMSULOSIN
  13. TIZANIDINE [Concomitant]
     Active Substance: TIZANIDINE
  14. VITAMIN B12 [Concomitant]
     Active Substance: CYANOCOBALAMIN
  15. VITAMIN D3 [Concomitant]
     Active Substance: CHOLECALCIFEROL

REACTIONS (4)
  - Asthenia [Unknown]
  - Fall [Unknown]
  - Inflammation [Unknown]
  - Off label use [Unknown]
